FAERS Safety Report 20667622 (Version 1)
Quarter: 2022Q2

REPORT INFORMATION
  Report Type: Report from Study
  Country: US (occurrence: US)
  Receive Date: 20220404
  Receipt Date: 20220404
  Transmission Date: 20220720
  Serious: No
  Sender: FDA-Public Use
  Company Number: US-Ipsen Biopharmaceuticals, Inc.-2022-08728

PATIENT
  Sex: Female

DRUGS (1)
  1. SOMATULINE DEPOT [Suspect]
     Active Substance: LANREOTIDE ACETATE
     Indication: Acromegaly
     Dosage: 60 MG EVERY 28 DAYS
     Route: 058
     Dates: start: 202106

REACTIONS (4)
  - Hypoglycaemia [Recovering/Resolving]
  - Alopecia [Recovering/Resolving]
  - Emotional disorder [Recovering/Resolving]
  - Loss of personal independence in daily activities [Recovering/Resolving]
